FAERS Safety Report 16323954 (Version 1)
Quarter: 2019Q2

REPORT INFORMATION
  Report Type: Spontaneous
  Country: GB (occurrence: GB)
  Receive Date: 20190517
  Receipt Date: 20190517
  Transmission Date: 20190711
  Serious: Yes (Hospitalization)
  Sender: FDA-Public Use
  Company Number: GB-ACCORD-127865

PATIENT
  Age: 89 Year
  Sex: Female
  Weight: 55 kg

DRUGS (17)
  1. CEFALEXIN [Concomitant]
     Active Substance: CEPHALEXIN
  2. FENTANYL. [Concomitant]
     Active Substance: FENTANYL
  3. AMITRIPTYLINE [Suspect]
     Active Substance: AMITRIPTYLINE
     Indication: INTERVERTEBRAL DISC PROTRUSION
     Dosage: AT NIGHT.
     Route: 048
     Dates: start: 20181001, end: 20190317
  4. DOXAZOSIN [Suspect]
     Active Substance: DOXAZOSIN\DOXAZOSIN MESYLATE
     Indication: ESSENTIAL HYPERTENSION
     Dosage: IN THE MORNING.
     Route: 048
     Dates: start: 20180601, end: 20190317
  5. LAXIDO [Concomitant]
     Active Substance: POLYETHYLENE GLYCOL 3350\POTASSIUM CHLORIDE\SODIUM BICARBONATE\SODIUM CHLORIDE
  6. BRALTUS [Concomitant]
     Active Substance: TIOTROPIUM BROMIDE
  7. OXYCODONE/OXYCODONE HYDROCHLORIDE/OXYCODONE PECTINATE/OXYCODONE TEREPHTHALATE [Concomitant]
  8. OMEPRAZOLE. [Concomitant]
     Active Substance: OMEPRAZOLE
  9. LOSARTAN. [Concomitant]
     Active Substance: LOSARTAN
  10. PARACETAMOL [Concomitant]
     Active Substance: ACETAMINOPHEN
  11. SALBUTAMOL [Concomitant]
     Active Substance: ALBUTEROL
  12. QUININE [Concomitant]
     Active Substance: QUININE
  13. SIMVASTATIN. [Concomitant]
     Active Substance: SIMVASTATIN
  14. ALENDRONATE SODIUM/ALENDRONIC ACID [Concomitant]
  15. ACCRETE D3 [Concomitant]
     Active Substance: CALCIUM CARBONATE\CHOLECALCIFEROL
  16. APIXABAN [Concomitant]
     Active Substance: APIXABAN
  17. SIRDUPLA [Concomitant]
     Active Substance: FLUTICASONE PROPIONATE\SALMETEROL XINAFOATE

REACTIONS (2)
  - Fall [Unknown]
  - Confusional state [Recovered/Resolved]

NARRATIVE: CASE EVENT DATE: 20190317
